FAERS Safety Report 7483023-8 (Version None)
Quarter: 2011Q2

REPORT INFORMATION
  Report Type: 
  Country: None (occurrence: None)
  Receive Date: 20110516
  Receipt Date: 20081115
  Transmission Date: 20111010
  Serious: Yes (Hospitalization, Other)
  Sender: FDA-Public Use
  Company Number: US-BAYER-200838756NA

PATIENT
  Age: 71 Year
  Sex: Male
  Weight: 119.8 kg

DRUGS (17)
  1. COZAAR [Concomitant]
     Dosage: 50 MG DAILY
  2. LOVENOX [Concomitant]
  3. SINGULAIR [Concomitant]
  4. TRASYLOL [Suspect]
     Indication: CORONARY ARTERY BYPASS
     Dosage: 200 THEN 50 CC/HOUR
     Route: 042
     Dates: start: 20060717, end: 20060717
  5. TRASYLOL [Suspect]
     Indication: MITRAL VALVE REPAIR
     Dosage: 200 PUMP PRIME
     Route: 042
     Dates: start: 20060717
  6. VERAPAMIL [Concomitant]
  7. FRESH FROZEN PLASMA [Concomitant]
     Dosage: 430CC
     Route: 042
     Dates: start: 20060717
  8. NITROGLYCERIN [Concomitant]
     Dosage: UNK
     Route: 042
     Dates: start: 20060717
  9. AMIODARONE HCL [Concomitant]
     Dosage: UNK
     Route: 042
     Dates: start: 20060717
  10. LIPITOR [Concomitant]
     Dosage: 40 MG DAILY
  11. COREG [Concomitant]
     Dosage: 6.25 MG TWICE DAILY
  12. AVANDIA [Concomitant]
  13. ALDACTONE [Concomitant]
     Dosage: 25 MG DAILY
  14. HEPARIN [Concomitant]
     Dosage: UNK
     Route: 042
     Dates: start: 20060717
  15. HYZAAR [Concomitant]
  16. WHOLE BLOOD [Concomitant]
     Dosage: 500CC
     Route: 042
     Dates: start: 20060717
  17. INSULIN [INSULIN] [Concomitant]
     Dosage: SLIDING SCALE

REACTIONS (5)
  - RENAL FAILURE [None]
  - PAIN [None]
  - UNEVALUABLE EVENT [None]
  - INJURY [None]
  - RENAL FAILURE ACUTE [None]
